FAERS Safety Report 7361814-1 (Version None)
Quarter: 2011Q1

REPORT INFORMATION
  Report Type: 
  Country: None (occurrence: None)
  Receive Date: 20110318
  Receipt Date: 20110307
  Transmission Date: 20110831
  Serious: Yes (Hospitalization, Other)
  Sender: FDA-Public Use
  Company Number: PT-CELGENEUS-130-20785-11031007

PATIENT
  Age: 52 Year
  Sex: Male

DRUGS (4)
  1. THALIDOMIDE [Suspect]
     Indication: MULTIPLE MYELOMA
     Route: 048
  2. OXYGEN [Concomitant]
     Indication: RESPIRATORY FAILURE
     Route: 065
  3. CYCLOPHOSPHAMIDE [Concomitant]
     Indication: MULTIPLE MYELOMA
     Route: 065
  4. PREDNISOLONE [Concomitant]
     Dosage: 10 MILLIGRAM
     Route: 065

REACTIONS (4)
  - VISUAL IMPAIRMENT [None]
  - PARAESTHESIA [None]
  - RESPIRATORY FAILURE [None]
  - STENOTROPHOMONAS SEPSIS [None]
